FAERS Safety Report 18704487 (Version 5)
Quarter: 2021Q1

REPORT INFORMATION
  Report Type: Report from Study
  Country: US (occurrence: US)
  Receive Date: 20210105
  Receipt Date: 20210302
  Transmission Date: 20210419
  Serious: Yes (Hospitalization)
  Sender: FDA-Public Use
  Company Number: US-SEATTLE GENETICS-2020SGN04682

PATIENT
  Age: 55 Year
  Sex: Female

DRUGS (2)
  1. TUCATINIB [Suspect]
     Active Substance: TUCATINIB
     Indication: HER2 POSITIVE BREAST CANCER
     Dosage: 300 MG, BID
     Route: 048
  2. XELODA [Concomitant]
     Active Substance: CAPECITABINE
     Indication: HER2 POSITIVE BREAST CANCER
     Route: 065

REACTIONS (19)
  - Hospitalisation [Unknown]
  - Unresponsive to stimuli [Unknown]
  - Asthenia [Unknown]
  - Aphasia [Unknown]
  - Altered state of consciousness [Unknown]
  - Muscular weakness [Unknown]
  - Nausea [Not Recovered/Not Resolved]
  - Medication error [Unknown]
  - Hepatic enzyme increased [Unknown]
  - Blood bilirubin increased [Unknown]
  - Constipation [Not Recovered/Not Resolved]
  - Pyrexia [Unknown]
  - Product dose omission issue [Unknown]
  - Mental impairment [Unknown]
  - Disease progression [Unknown]
  - Product use complaint [Unknown]
  - Fatigue [Unknown]
  - Cognitive disorder [Unknown]
  - Feeling abnormal [Unknown]

NARRATIVE: CASE EVENT DATE: 202012
